FAERS Safety Report 7646036-9 (Version None)
Quarter: 2011Q3

REPORT INFORMATION
  Report Type: 
  Country: None (occurrence: None)
  Receive Date: 20110801
  Receipt Date: 20110728
  Transmission Date: 20111222
  Serious: Yes (Hospitalization)
  Sender: FDA-Public Use
  Company Number: ES-BRISTOL-MYERS SQUIBB COMPANY-15932171

PATIENT
  Age: 73 Year
  Sex: Female

DRUGS (7)
  1. PREDNISONE TAB [Concomitant]
     Dates: start: 20080208
  2. CISPLATIN [Suspect]
     Indication: METASTATIC GASTRIC CANCER
     Route: 042
     Dates: start: 20080212
  3. CAPECITABINE [Suspect]
     Indication: METASTATIC GASTRIC CANCER
     Route: 048
     Dates: start: 20080212
  4. METAMIZOL [Concomitant]
     Dates: start: 20080208
  5. CLORTALIDONE [Concomitant]
  6. DOCETAXEL [Suspect]
     Indication: METASTATIC GASTRIC CANCER
     Route: 042
     Dates: start: 20080212
  7. PANTOPRAZOLE SODIUM [Concomitant]
     Dates: start: 20080108

REACTIONS (2)
  - NEUTROPENIA [None]
  - STOMATITIS [None]
